FAERS Safety Report 5833507-0 (Version None)
Quarter: 2008Q3

REPORT INFORMATION
  Report Type: 
  Country: None (occurrence: None)
  Receive Date: 20080804
  Receipt Date: 20080804
  Transmission Date: 20090109
  Serious: No
  Sender: FDA-Public Use
  Company Number: None

PATIENT
  Age: 8 Year
  Sex: Male
  Weight: 27.2158 kg

DRUGS (2)
  1. STRATTERA [Suspect]
     Indication: ATTENTION DEFICIT/HYPERACTIVITY DISORDER
     Dosage: 1 EVERY MORNING PO
     Route: 048
     Dates: start: 20080717, end: 20080802
  2. STRATTERA [Suspect]
     Dosage: 1 EVERY NIGHT PO
     Route: 048

REACTIONS (1)
  - EPISTAXIS [None]
